FAERS Safety Report 13840161 (Version 5)
Quarter: 2018Q2

REPORT INFORMATION
  Report Type: Spontaneous
  Country: BR (occurrence: BR)
  Receive Date: 20170807
  Receipt Date: 20180529
  Transmission Date: 20180711
  Serious: Yes (Other)
  Sender: FDA-Public Use
  Company Number: BR-GLAXOSMITHKLINE-BR2016GSK061404

PATIENT
  Sex: Female
  Weight: 70 kg

DRUGS (9)
  1. MAREVAN (WARFARIN SODIUM) [Concomitant]
     Active Substance: WARFARIN SODIUM
     Indication: PRODUCT USED FOR UNKNOWN INDICATION
     Dosage: UNK
  2. IRON INFUSION [Concomitant]
     Active Substance: IRON
     Indication: PRODUCT USED FOR UNKNOWN INDICATION
     Dosage: UNK
  3. BENLYSTA [Suspect]
     Active Substance: BELIMUMAB
     Dosage: UNK
     Dates: start: 20170517
  4. BENLYSTA [Suspect]
     Active Substance: BELIMUMAB
     Dosage: UNK
     Dates: start: 20170621
  5. BENLYSTA [Suspect]
     Active Substance: BELIMUMAB
     Indication: SYSTEMIC LUPUS ERYTHEMATOSUS
     Dosage: 720 MG, UNK
     Route: 042
     Dates: start: 20160301
  6. BENLYSTA [Suspect]
     Active Substance: BELIMUMAB
     Dosage: 720 MG, UNK
     Dates: start: 20170801
  7. REUQUINOL (HYDROXYCHLOROQUINE SULFATE) [Concomitant]
     Indication: PRODUCT USED FOR UNKNOWN INDICATION
     Dosage: UNK
  8. ACETYLSALICYLIC ACID [Concomitant]
     Active Substance: ASPIRIN
     Indication: PRODUCT USED FOR UNKNOWN INDICATION
     Dosage: UNK
  9. OMEPRAZOLE. [Concomitant]
     Active Substance: OMEPRAZOLE
     Indication: PRODUCT USED FOR UNKNOWN INDICATION
     Dosage: UNK

REACTIONS (11)
  - Malaise [Unknown]
  - Underdose [Not Recovered/Not Resolved]
  - Inappropriate schedule of drug administration [Unknown]
  - Circumstance or information capable of leading to medication error [Recovered/Resolved]
  - Weight decreased [Unknown]
  - Tooth extraction [Unknown]
  - Drug dose omission [Not Recovered/Not Resolved]
  - Overdose [Unknown]
  - Skin burning sensation [Unknown]
  - Product storage error [Unknown]
  - Fatigue [Unknown]
